FAERS Safety Report 15992811 (Version 1)
Quarter: 2019Q1

REPORT INFORMATION
  Report Type: Spontaneous
  Country: NL (occurrence: NL)
  Receive Date: 20190221
  Receipt Date: 20190221
  Transmission Date: 20190418
  Serious: Yes (Other)
  Sender: FDA-Public Use
  Company Number: NL-TEVA-2019-NL-1014986

PATIENT
  Age: 30 Year
  Sex: Female
  Weight: 60 kg

DRUGS (6)
  1. TEMAZEPAM CAPSULE 20MG ORAAL [Concomitant]
     Dosage: 1
     Dates: start: 20170101
  2. KETAMINE [Concomitant]
     Active Substance: KETAMINE
     Dosage: 1-3 X P WEEK
  3. MELATONINE CAPSULE  1MG CAPSULE, 1 MG (MILLIGRAM) [Concomitant]
     Dosage: 10
     Dates: start: 20170401
  4. OXYCODON TABLET MGA 40MG TABLET MET GEREGULEERDE AFGIFTE, 40 MG (MILL [Suspect]
     Active Substance: OXYCODONE
     Indication: DRUG ABUSE
     Route: 065
     Dates: start: 20170203
  5. COCAINE ROKEN [Suspect]
     Active Substance: COCAINE
     Indication: DRUG ABUSE
     Dosage: 0,3-0,5 G
     Dates: start: 20180103
  6. HEROIN [Concomitant]
     Active Substance: DIAMORPHINE
     Dosage: 2X P WEEK

REACTIONS (12)
  - Heart rate irregular [Not Recovered/Not Resolved]
  - Haematoma [Not Recovered/Not Resolved]
  - Balance disorder [Not Recovered/Not Resolved]
  - Temperature regulation disorder [Not Recovered/Not Resolved]
  - Affective disorder [Not Recovered/Not Resolved]
  - Nasal congestion [Not Recovered/Not Resolved]
  - Hyperhidrosis [Not Recovered/Not Resolved]
  - Seizure [Not Recovered/Not Resolved]
  - Myoclonus [Not Recovered/Not Resolved]
  - Dyspnoea [Not Recovered/Not Resolved]
  - Hallucination, auditory [Not Recovered/Not Resolved]
  - Pruritus [Not Recovered/Not Resolved]

NARRATIVE: CASE EVENT DATE: 20170203
